FAERS Safety Report 5799579-7 (Version None)
Quarter: 2008Q3

REPORT INFORMATION
  Report Type: 
  Country: None (occurrence: None)
  Receive Date: 20080703
  Receipt Date: 20080618
  Transmission Date: 20090109
  Serious: Yes (Other)
  Sender: FDA-Public Use
  Company Number: PHBS1992TW02509

PATIENT
  Age: 48 Year
  Sex: Female

DRUGS (2)
  1. LIORESAL [Suspect]
     Dosage: 37.5 MG/DAY
     Route: 048
  2. LIORESAL [Suspect]
     Dosage: 150 MG/DAY
     Route: 048

REACTIONS (10)
  - DELIRIUM [None]
  - HEART RATE INCREASED [None]
  - HYPERTENSION [None]
  - HYPERTHERMIA [None]
  - HYPERVENTILATION [None]
  - LOGORRHOEA [None]
  - LOSS OF CONSCIOUSNESS [None]
  - OVERDOSE [None]
  - TACHYPNOEA [None]
  - URINARY INCONTINENCE [None]
